FAERS Safety Report 5452763-4 (Version None)
Quarter: 2007Q3

REPORT INFORMATION
  Report Type: 
  Country: None (occurrence: None)
  Receive Date: 20070914
  Receipt Date: 20070905
  Transmission Date: 20080115
  Serious: Yes (Disabling)
  Sender: FDA-Public Use
  Company Number: DK-SANOFI-SYNTHELABO-A01200708854

PATIENT
  Sex: Male

DRUGS (11)
  1. ZINC SULFATE [Concomitant]
  2. ASPIRIN [Concomitant]
  3. METFORMIN HYDROCHLORIDE [Concomitant]
  4. RISPERIDONE [Concomitant]
  5. PERINDOPRIL ERBUMINE [Concomitant]
  6. CARVEDILOL [Concomitant]
  7. GLIMEPIRIDE [Concomitant]
  8. FLUTAMIDE [Concomitant]
     Dosage: UNK
     Dates: start: 20070501
  9. SPIRONOLACTONE [Concomitant]
     Dosage: UNK
     Route: 065
  10. PROCREN [Suspect]
     Route: 058
     Dates: start: 20050310
  11. ELIGARD [Suspect]
     Route: 058
     Dates: start: 20070314, end: 20070314

REACTIONS (3)
  - ECCHYMOSIS [None]
  - ECZEMA [None]
  - PRURITUS GENERALISED [None]
